FAERS Safety Report 9514027 (Version 2)
Quarter: 2013Q3

REPORT INFORMATION
  Report Type: Spontaneous
  Country: AU (occurrence: AU)
  Receive Date: 20130910
  Receipt Date: 20130910
  Transmission Date: 20140515
  Serious: Yes (Hospitalization)
  Sender: FDA-Public Use
  Company Number: AU-PFIZER INC-2013203958

PATIENT
  Age: 56 Year
  Sex: Female
  Weight: 96 kg

DRUGS (15)
  1. LYRICA [Suspect]
     Indication: NEURALGIA
     Dosage: 75 MG, 2X/DAY
     Route: 048
     Dates: start: 201303, end: 201306
  2. CORALAN [Concomitant]
     Dosage: 5 MG 2X/DAY
  3. FRUSEMIDE [Concomitant]
     Dosage: 40 MG, 2 IN THE MORNING, 1 AT LUNCH
  4. IMDUR [Concomitant]
     Dosage: 60 MG HALF DAILY
  5. MEGAFOL [Concomitant]
     Dosage: 5 MG, 1 ON MONDAYS AND TUESDAYS
  6. METHOBLASTIN [Concomitant]
     Dosage: 10 MG 2 ONCE A WEEK ON WEDNESDAYS
  7. NEXIUM [Concomitant]
     Dosage: 20 MG 1X/DAY IN THE MORNING ON AN EMPTY STOMACH
  8. NITROLINGUAL-PUMPSPRAY [Concomitant]
     Dosage: 400 UG/DOSE, 1-2 SPRAY
  9. PANADOL OSTEO [Concomitant]
     Dosage: 665 MG 2 TWICE A DAY
  10. PREMIA 5 CONTINOUS [Concomitant]
     Dosage: 5, 1 IN THE EVENING
  11. EFEXOR [Concomitant]
     Dosage: 225, IN THE MORNING
  12. RAMIPRIL [Concomitant]
     Dosage: 10 MG, 1 IN THE MORNING
  13. SPIRACTIN [Concomitant]
     Dosage: 25 MG, 1 IN THE MORNING
  14. JURNISTA [Concomitant]
     Dosage: 64, 1X/DAY
  15. TRAMEDO [Concomitant]
     Dosage: 50 MG, 3X/DAY WHEN REQUIRED

REACTIONS (4)
  - Suicidal ideation [Recovering/Resolving]
  - Insomnia [Recovering/Resolving]
  - Irritability [Recovering/Resolving]
  - Verbal abuse [Recovering/Resolving]
